FAERS Safety Report 6120649-8 (Version None)
Quarter: 2009Q1

REPORT INFORMATION
  Report Type: 
  Country: None (occurrence: None)
  Receive Date: 20090313
  Receipt Date: 20090302
  Transmission Date: 20090719
  Serious: Yes (Other)
  Sender: FDA-Public Use
  Company Number: GXKR2009BR02745

PATIENT
  Age: 22 Year
  Sex: Female
  Weight: 58 kg

DRUGS (2)
  1. AMPICILLIN [Suspect]
     Indication: URINARY TRACT INFECTION
     Dosage: 500MG, Q6G, ORAL
     Route: 048
     Dates: start: 20090220, end: 20090226
  2. VITAMIN NOS (VITAMIN NOS) [Concomitant]

REACTIONS (2)
  - ABORTION [None]
  - DRUG EXPOSURE DURING PREGNANCY [None]
